FAERS Safety Report 15680505 (Version 1)
Quarter: 2018Q4

REPORT INFORMATION
  Report Type: Report from Study
  Country: US (occurrence: US)
  Receive Date: 20181203
  Receipt Date: 20181203
  Transmission Date: 20190205
  Serious: Yes (Other)
  Sender: FDA-Public Use
  Company Number: US-ROCHE-2047854

PATIENT
  Sex: Male
  Weight: 23.2 kg

DRUGS (2)
  1. ALBUTEROL. [Concomitant]
     Active Substance: ALBUTEROL
     Dosage: PRN
     Route: 065
  2. NUTROPIN AQ [Suspect]
     Active Substance: SOMATROPIN
     Indication: HYPOTHYROIDISM
     Route: 058
     Dates: start: 20170112

REACTIONS (3)
  - Decreased appetite [Unknown]
  - Growth retardation [Unknown]
  - Hydrocele [Unknown]
